FAERS Safety Report 14595190 (Version 1)
Quarter: 2018Q1

REPORT INFORMATION
  Report Type: Spontaneous
  Country: US (occurrence: US)
  Receive Date: 20180302
  Receipt Date: 20180302
  Transmission Date: 20180509
  Serious: Yes (Other)
  Sender: FDA-Public Use
  Company Number: US-AKORN PHARMACEUTICALS-2017AKN00328

PATIENT
  Age: 65 Year
  Sex: Male
  Weight: 72.56 kg

DRUGS (4)
  1. MYORISAN [Suspect]
     Active Substance: ISOTRETINOIN
     Indication: ACNE
     Dosage: 30 MG, 2X/DAY
     Route: 048
     Dates: start: 20161118, end: 20170313
  2. VITAMIN B12 [Concomitant]
     Active Substance: CYANOCOBALAMIN
  3. ST JOHN^S WORT [Concomitant]
     Active Substance: ST. JOHN^S WORT
  4. GINGER. [Concomitant]
     Active Substance: GINGER

REACTIONS (3)
  - Dizziness [Unknown]
  - Fatigue [Unknown]
  - Anaemia [Unknown]

NARRATIVE: CASE EVENT DATE: 201702
